FAERS Safety Report 8173425-9 (Version None)
Quarter: 2012Q1

REPORT INFORMATION
  Report Type: 
  Country: None (occurrence: None)
  Receive Date: 20120229
  Receipt Date: 20120228
  Transmission Date: 20120608
  Serious: Yes (Other)
  Sender: FDA-Public Use
  Company Number: BR-ABBOTT-11P-020-0844986-00

PATIENT
  Sex: Female
  Weight: 66 kg

DRUGS (5)
  1. PREDNISONE [Concomitant]
     Indication: ARTHRITIS
     Route: 048
     Dates: start: 19980101
  2. HUMIRA [Suspect]
     Indication: RHEUMATOID ARTHRITIS
     Route: 058
     Dates: start: 20090801
  3. METHOTREXATE [Suspect]
     Indication: ARTHRITIS
     Route: 048
     Dates: start: 19980101
  4. PLAQUINOL TAB [Suspect]
     Indication: PRODUCT USED FOR UNKNOWN INDICATION
  5. NAPROX [Concomitant]
     Indication: ARTHRITIS
     Route: 048
     Dates: start: 19980101

REACTIONS (6)
  - INJECTION SITE ERYTHEMA [None]
  - ADENOMYOSIS [None]
  - ABORTION SPONTANEOUS [None]
  - ABDOMINAL PAIN [None]
  - INJECTION SITE PRURITUS [None]
  - THROMBOSIS [None]
